FAERS Safety Report 5619497-4 (Version None)
Quarter: 2008Q1

REPORT INFORMATION
  Report Type: 
  Country: None (occurrence: None)
  Receive Date: 20080109
  Receipt Date: 20061108
  Transmission Date: 20080703
  Serious: Yes (Hospitalization)
  Sender: FDA-Public Use
  Company Number: WAES 0611USA03260

PATIENT
  Age: 68 Year
  Sex: Male
  Weight: 73.9363 kg

DRUGS (6)
  1. ZETIA [Suspect]
     Indication: BLOOD CHOLESTEROL INCREASED
     Dosage: 10 MG, DAILY, PO
     Route: 048
     Dates: start: 20050414, end: 20061104
  2. ATACAND HCT [Concomitant]
  3. PROSCAR [Concomitant]
  4. TRICOR [Concomitant]
  5. OMEPRAZOLE [Concomitant]
  6. PRAVASTATIN SODIUM [Concomitant]

REACTIONS (1)
  - PANCREATITIS ACUTE [None]
